FAERS Safety Report 16866888 (Version 1)
Quarter: 2019Q3

REPORT INFORMATION
  Report Type: Spontaneous
  Country: SE (occurrence: SE)
  Receive Date: 20190930
  Receipt Date: 20190930
  Transmission Date: 20191005
  Serious: Yes (Other)
  Sender: FDA-Public Use
  Company Number: SE-ACCORD-156041

PATIENT
  Age: 11 Year

DRUGS (4)
  1. LITHIUM. [Concomitant]
     Active Substance: LITHIUM
  2. CLONIDINE. [Concomitant]
     Active Substance: CLONIDINE
  3. METHYLPHENIDATE. [Suspect]
     Active Substance: METHYLPHENIDATE
  4. ARIPIPRAZOLE. [Suspect]
     Active Substance: ARIPIPRAZOLE

REACTIONS (8)
  - Withdrawal syndrome [Unknown]
  - Affect lability [Unknown]
  - Aggression [Unknown]
  - Joint stiffness [Unknown]
  - Dystonia [Unknown]
  - Muscle contracture [Unknown]
  - Trismus [Recovered/Resolved]
  - Intentional self-injury [Unknown]
